FAERS Safety Report 7716295-2 (Version None)
Quarter: 2011Q3

REPORT INFORMATION
  Report Type: 
  Country: None (occurrence: None)
  Receive Date: 20110829
  Receipt Date: 20110815
  Transmission Date: 20111222
  Serious: Yes (Other)
  Sender: FDA-Public Use
  Company Number: PHHY2011BR73773

PATIENT
  Sex: Female
  Weight: 65 kg

DRUGS (5)
  1. LANTUS [Concomitant]
     Indication: DIABETES MELLITUS
     Dosage: 10 U, BID
     Route: 058
  2. ACTOS [Concomitant]
     Indication: DIABETES MELLITUS
     Dosage: 1 DF, DAILY
     Route: 048
  3. JANUVIA [Concomitant]
     Indication: DIABETES MELLITUS
     Dosage: 1 DF, DAILY
     Route: 048
  4. EXFORGE [Suspect]
     Indication: HYPERTENSION
     Dosage: 1 DF, DAILY
     Route: 048
     Dates: start: 20101001
  5. AAS INFANTIL [Concomitant]
     Indication: CIRCULATING ANTICOAGULANT
     Dosage: 1 DF, QD
     Route: 048
     Dates: start: 20101001

REACTIONS (3)
  - PAIN [None]
  - BEDRIDDEN [None]
  - SPINAL FRACTURE [None]
